FAERS Safety Report 25158127 (Version 2)
Quarter: 2025Q3

REPORT INFORMATION
  Report Type: Spontaneous
  Country: EU (occurrence: EU)
  Receive Date: 20250404
  Receipt Date: 20250703
  Transmission Date: 20251021
  Serious: Yes (Hospitalization)
  Sender: NOVARTIS
  Company Number: EU-002147023-NVSC2025DE054287

PATIENT
  Age: 35 Year
  Sex: Female
  Weight: 188 kg

DRUGS (1)
  1. KESIMPTA [Suspect]
     Active Substance: OFATUMUMAB
     Indication: Relapsing multiple sclerosis
     Route: 058
     Dates: start: 202303, end: 202503

REACTIONS (2)
  - Pneumonia [Recovering/Resolving]
  - Obesity [Not Recovered/Not Resolved]
